FAERS Safety Report 6372776-8 (Version None)
Quarter: 2009Q3

REPORT INFORMATION
  Report Type: 
  Country: None (occurrence: None)
  Receive Date: 20090924
  Receipt Date: 20081203
  Transmission Date: 20100115
  Serious: Yes (Other)
  Sender: FDA-Public Use
  Company Number: US-ASTRAZENECA-2008UW24321

PATIENT
  Age: 38 Year
  Sex: Male
  Weight: 88.5 kg

DRUGS (6)
  1. SEROQUEL [Suspect]
     Indication: SCHIZOAFFECTIVE DISORDER
     Route: 048
     Dates: start: 19990301
  2. SEROQUEL [Suspect]
     Indication: TARDIVE DYSKINESIA
     Route: 048
     Dates: start: 19990301
  3. CLOZARIL [Concomitant]
     Dates: start: 20020416
  4. HALDOL [Concomitant]
     Dates: start: 19920101, end: 19960101
  5. RISPERDAL [Concomitant]
     Dates: start: 19961010, end: 19971120
  6. ZYPREXA [Concomitant]
     Dates: start: 19980806, end: 20000201

REACTIONS (3)
  - BLOOD CHOLESTEROL INCREASED [None]
  - DIABETES MELLITUS [None]
  - TARDIVE DYSKINESIA [None]
